FAERS Safety Report 24664461 (Version 1)
Quarter: 2024Q4

REPORT INFORMATION
  Report Type: Spontaneous
  Country: AU (occurrence: AU)
  Receive Date: 20241126
  Receipt Date: 20241126
  Transmission Date: 20250115
  Serious: Yes (Hospitalization)
  Sender: MERCK
  Company Number: AU-009507513-2411AUS009585

PATIENT
  Age: 59 Year
  Sex: Male
  Weight: 75 kg

DRUGS (4)
  1. PEMBROLIZUMAB [Suspect]
     Active Substance: PEMBROLIZUMAB
     Indication: Non-small cell lung cancer metastatic
     Dosage: DOSE: 200 MILLIGRAM; DOSE FORM: SOLUTION FOR INFUSION; INTERVAL: 3 WEEK; ROUTE OF ADMINISTRATION: IN
     Route: 042
     Dates: start: 20240924, end: 20240924
  2. DEXAMETHASONE [Suspect]
     Active Substance: DEXAMETHASONE
     Indication: Non-small cell lung cancer metastatic
     Dosage: DOSE FORM: TABLET; ROUTE OF ADMINISTRATION: INFORMATION NOT PROVIDED BY SPONSOR
     Dates: start: 20240924
  3. PACLITAXEL [Suspect]
     Active Substance: PACLITAXEL
     Indication: Non-small cell lung cancer metastatic
     Dosage: DOSE: 175 MILLIGRAM/SQUARE METRE; DOSE FORM: INFUSION; ROUTE OF ADMINISTRATION: INTRAVENOUS
     Route: 042
     Dates: start: 20240924, end: 20240924
  4. CARBOPLATIN [Suspect]
     Active Substance: CARBOPLATIN
     Indication: Non-small cell lung cancer metastatic
     Dosage: DOSE: 650 MILLIGRAM; DOSE FORM: INFUSION; ROUTE OF ADMINISTRATION: INTRAVENOUS
     Route: 042
     Dates: start: 20240924, end: 20240924

REACTIONS (1)
  - Hyperglycaemia [Not Recovered/Not Resolved]

NARRATIVE: CASE EVENT DATE: 20241001
